FAERS Safety Report 11199610 (Version 1)
Quarter: 2015Q2

REPORT INFORMATION
  Report Type: Spontaneous
  Country: US (occurrence: None)
  Receive Date: 20150617
  Receipt Date: 20150617
  Transmission Date: 20150821
  Serious: Yes (Other)
  Sender: FDA-Public Use
  Company Number: None

PATIENT
  Age: 59 Year
  Sex: Female
  Weight: 76.2 kg

DRUGS (1)
  1. HUMIRA [Suspect]
     Active Substance: ADALIMUMAB
     Indication: RHEUMATOID ARTHRITIS
     Route: 058
     Dates: start: 20150311, end: 20150603

REACTIONS (5)
  - Paraesthesia [None]
  - Condition aggravated [None]
  - Arthralgia [None]
  - Hypoaesthesia [None]
  - Pain [None]

NARRATIVE: CASE EVENT DATE: 20150401
